FAERS Safety Report 6723176-X (Version None)
Quarter: 2010Q2

REPORT INFORMATION
  Report Type: 
  Country: None (occurrence: None)
  Receive Date: 20100513
  Receipt Date: 20100506
  Transmission Date: 20101027
  Serious: Yes (Other)
  Sender: FDA-Public Use
  Company Number: US-JNJFOC-20100502512

PATIENT
  Sex: Female
  Weight: 86.18 kg

DRUGS (6)
  1. FENTANYL CITRATE [Suspect]
     Indication: PAIN
     Route: 062
  2. FENTANYL CITRATE [Suspect]
     Route: 062
  3. DURAGESIC-100 [Suspect]
     Indication: PAIN
     Route: 062
  4. DURAGESIC-100 [Suspect]
     Route: 062
  5. DURAGESIC-100 [Suspect]
     Route: 062
  6. FENTANYL-100 [Suspect]
     Indication: PAIN
     Route: 062

REACTIONS (19)
  - ABDOMINAL RIGIDITY [None]
  - ADVERSE EVENT [None]
  - APPLICATION SITE PRURITUS [None]
  - APPLICATION SITE RASH [None]
  - APPLICATION SITE SCAR [None]
  - BIOPSY LIVER [None]
  - DERMATITIS CONTACT [None]
  - DIABETES MELLITUS [None]
  - EATING DISORDER [None]
  - HIATUS HERNIA [None]
  - LUNG INFECTION [None]
  - LYMPHADENOPATHY [None]
  - MIGRAINE [None]
  - OXYGEN SATURATION DECREASED [None]
  - PAIN [None]
  - SCAR [None]
  - SENSORY DISTURBANCE [None]
  - SINUSITIS [None]
  - WEIGHT DECREASED [None]
